FAERS Safety Report 7138212-9 (Version None)
Quarter: 2010Q4

REPORT INFORMATION
  Report Type: 
  Country: None (occurrence: None)
  Receive Date: 20101202
  Receipt Date: 20101202
  Transmission Date: 20110411
  Serious: Yes (Death)
  Sender: FDA-Public Use
  Company Number: None

PATIENT
  Age: 67 Year
  Sex: Male

DRUGS (10)
  1. REVLIMID [Suspect]
     Indication: MULTIPLE MYELOMA
     Dosage: 25MG DAILY ORALLY
     Route: 048
     Dates: start: 20090310, end: 20100410
  2. FENTANYL-100 [Concomitant]
  3. ASPIRIN [Concomitant]
  4. MORPHINE [Concomitant]
  5. PHENOBARBITAL [Concomitant]
  6. INDOMETHACIN [Concomitant]
  7. ACYCLOVIR [Concomitant]
  8. METOPROLOL TARTRATE [Concomitant]
  9. PAMELOR [Concomitant]
  10. OXYCODONE [Concomitant]

REACTIONS (13)
  - BONE NEOPLASM [None]
  - CANCER PAIN [None]
  - CHRONIC OBSTRUCTIVE PULMONARY DISEASE [None]
  - DISEASE PROGRESSION [None]
  - GOUT [None]
  - HYPERLIPIDAEMIA [None]
  - HYPERTENSION [None]
  - NON-HODGKIN'S LYMPHOMA [None]
  - PLASMACYTOMA [None]
  - PULMONARY EMBOLISM [None]
  - RAYNAUD'S PHENOMENON [None]
  - SUPRAVENTRICULAR TACHYCARDIA [None]
  - TYPE 2 DIABETES MELLITUS [None]
